FAERS Safety Report 5556330-3 (Version None)
Quarter: 2007Q4

REPORT INFORMATION
  Report Type: 
  Country: None (occurrence: None)
  Receive Date: 20071203
  Receipt Date: 20071121
  Transmission Date: 20080405
  Serious: Yes (Other)
  Sender: FDA-Public Use
  Company Number: CHNY2007ES03854

PATIENT
  Sex: Female

DRUGS (1)
  1. BENEFIBER (NCH)(GUAR GUM) POWDER [Suspect]
     Dosage: 1 DF, QD, ORAL
     Route: 048

REACTIONS (2)
  - ORAL PRURITUS [None]
  - TONGUE OEDEMA [None]
